FAERS Safety Report 7446161-1 (Version None)
Quarter: 2011Q2

REPORT INFORMATION
  Report Type: 
  Country: None (occurrence: None)
  Receive Date: 20110429
  Receipt Date: 20110422
  Transmission Date: 20111010
  Serious: Yes (Hospitalization)
  Sender: FDA-Public Use
  Company Number: B0715577A

PATIENT
  Sex: Male
  Weight: 54 kg

DRUGS (13)
  1. METHOTREXATE [Concomitant]
     Indication: IMMUNOSUPPRESSION
     Dosage: 10MGM2 PER DAY
     Route: 065
     Dates: start: 20080315, end: 20080325
  2. CIPROXAN [Concomitant]
     Dosage: 600MG PER DAY
     Route: 048
  3. KYTRIL [Concomitant]
     Dosage: 3MG PER DAY
     Route: 042
     Dates: end: 20080312
  4. URSO 250 [Concomitant]
     Dosage: 600MG PER DAY
     Route: 048
     Dates: end: 20080501
  5. TACROLIMUS HYDRATE [Concomitant]
     Indication: IMMUNOSUPPRESSION
     Dosage: 2MG PER DAY
     Route: 065
     Dates: start: 20080313
  6. TAKEPRON [Concomitant]
     Dosage: 15MG PER DAY
     Route: 048
     Dates: end: 20080501
  7. MAGMITT [Concomitant]
     Dosage: 1890MG PER DAY
     Route: 048
     Dates: start: 20080311, end: 20080317
  8. FUNGUARD [Concomitant]
     Dosage: 50MG PER DAY
     Route: 042
     Dates: end: 20080321
  9. FLUDARA [Suspect]
     Indication: ALLOGENIC BONE MARROW TRANSPLANTATION THERAPY
     Dosage: 38MG PER DAY
     Route: 042
     Dates: start: 20080306, end: 20080310
  10. LAXOBERON [Concomitant]
     Route: 048
     Dates: start: 20080311, end: 20080311
  11. DEPAS [Concomitant]
     Route: 048
     Dates: start: 20080311, end: 20080327
  12. ALKERAN [Suspect]
     Indication: ALLOGENIC BONE MARROW TRANSPLANTATION THERAPY
     Dosage: 106MG PER DAY
     Route: 042
     Dates: start: 20080311, end: 20080312
  13. FUROSEMIDE [Concomitant]
     Dosage: 10MG PER DAY
     Route: 042
     Dates: start: 20080311, end: 20080418

REACTIONS (1)
  - FEBRILE NEUTROPENIA [None]
